APPROVED DRUG PRODUCT: OXACILLIN SODIUM
Active Ingredient: OXACILLIN SODIUM
Strength: EQ 500MG BASE/VIAL
Dosage Form/Route: INJECTABLE;INJECTION
Application: A062856 | Product #002
Applicant: WATSON LABORATORIES INC
Approved: Oct 26, 1988 | RLD: No | RS: No | Type: DISCN